FAERS Safety Report 7593253-2 (Version None)
Quarter: 2011Q3

REPORT INFORMATION
  Report Type: 
  Country: None (occurrence: None)
  Receive Date: 20110706
  Receipt Date: 20110630
  Transmission Date: 20111222
  Serious: Yes (Hospitalization, Other)
  Sender: FDA-Public Use
  Company Number: US-PFIZER INC-2011145862

PATIENT
  Age: 35 Year
  Sex: Female
  Weight: 74.5 kg

DRUGS (2)
  1. BEVACIZUMAB [Suspect]
     Indication: MALIGNANT MELANOMA
     Dosage: 5 MG/KG, OVER 90-30 MIN ON DAYS 1, 15, 29
     Route: 042
     Dates: start: 20110519, end: 20110616
  2. SUNITINIB MALATE [Suspect]
     Indication: MALIGNANT MELANOMA
     Dosage: 37.5 MG, 1X/DAY ON DAYS 1-28
     Route: 048
     Dates: start: 20110519, end: 20110615

REACTIONS (12)
  - NEUTROPHIL COUNT DECREASED [None]
  - VOMITING [None]
  - CONDUCTION DISORDER [None]
  - FATIGUE [None]
  - ABDOMINAL PAIN [None]
  - ANAEMIA [None]
  - HYPOCALCAEMIA [None]
  - STOMATITIS [None]
  - NAUSEA [None]
  - HYPOALBUMINAEMIA [None]
  - HYPOPHOSPHATAEMIA [None]
  - PLATELET COUNT DECREASED [None]
